FAERS Safety Report 13411060 (Version 3)
Quarter: 2018Q1

REPORT INFORMATION
  Report Type: Spontaneous
  Country: US (occurrence: US)
  Receive Date: 20170406
  Receipt Date: 20180310
  Transmission Date: 20180508
  Serious: No
  Sender: FDA-Public Use
  Company Number: US-JNJFOC-20170305147

PATIENT
  Age: 16 Year
  Sex: Male

DRUGS (6)
  1. RISPERDAL [Suspect]
     Active Substance: RISPERIDONE
     Indication: NIGHTMARE
     Route: 048
     Dates: start: 20110112, end: 20130815
  2. RISPERDAL CONSTA [Suspect]
     Active Substance: RISPERIDONE
     Indication: NIGHTMARE
     Dosage: IN VARYING DOSES OF 2 MG, 3 MG AND 4 MG
     Route: 030
     Dates: start: 20050623
  3. RISPERIDONE. [Suspect]
     Active Substance: RISPERIDONE
     Indication: NIGHTMARE
     Dosage: IN VARYING DOSES OF 3 MG AND 2 MG
     Route: 065
     Dates: start: 20090710, end: 20101220
  4. RISPERDAL [Suspect]
     Active Substance: RISPERIDONE
     Indication: NIGHTMARE
     Dosage: IN VARYING DOSES OF 2 MG, 3 MG AND 4 MG
     Route: 048
     Dates: start: 20030213, end: 20090422
  5. INVEGA SUSTENNA [Suspect]
     Active Substance: PALIPERIDONE PALMITATE
     Indication: NIGHTMARE
     Dosage: IN VARYING DOSES OF 234 MG AND 117 MG
     Route: 030
     Dates: start: 20110112
  6. RISPERDAL M-TAB [Suspect]
     Active Substance: RISPERIDONE
     Indication: PRODUCT USED FOR UNKNOWN INDICATION
     Route: 048

REACTIONS (4)
  - Gynaecomastia [Unknown]
  - Off label use [Unknown]
  - Emotional distress [Unknown]
  - Product use in unapproved indication [Unknown]

NARRATIVE: CASE EVENT DATE: 20030213
